FAERS Safety Report 9993894 (Version 2)
Quarter: 2014Q1

REPORT INFORMATION
  Report Type: Spontaneous
  Country: US (occurrence: US)
  Receive Date: 20140310
  Receipt Date: 20140310
  Transmission Date: 20141002
  Serious: No
  Sender: FDA-Public Use
  Company Number: US-AMGEN-USASP2013058122

PATIENT
  Age: 73 Year
  Sex: Male
  Weight: 64 kg

DRUGS (5)
  1. SENSIPAR [Suspect]
     Indication: HYPERPARATHYROIDISM SECONDARY
     Dosage: 30 MG, QD
     Route: 048
     Dates: start: 20130416, end: 20130618
  2. VITAMIN C                          /00008001/ [Concomitant]
     Dosage: 1000 MG, QD
     Route: 048
     Dates: start: 2010
  3. VITAMIN B COMPLEX [Concomitant]
     Dosage: UNK
     Route: 048
     Dates: start: 2010
  4. IRON                               /00023503/ [Concomitant]
     Dosage: UNK UNK, QD
     Route: 048
     Dates: start: 2012
  5. TUMS                               /00193601/ [Concomitant]
     Dosage: 500 MG, UNK
     Dates: start: 2012

REACTIONS (3)
  - Dizziness [Not Recovered/Not Resolved]
  - Balance disorder [Not Recovered/Not Resolved]
  - Walking aid user [Not Recovered/Not Resolved]
